FAERS Safety Report 17693148 (Version 1)
Quarter: 2020Q2

REPORT INFORMATION
  Report Type: Spontaneous
  Country: US (occurrence: US)
  Receive Date: 20200421
  Receipt Date: 20200421
  Transmission Date: 20200714
  Serious: No
  Sender: FDA-Public Use
  Company Number: None

PATIENT
  Age: 77 Year
  Sex: Male

DRUGS (2)
  1. MYCOPEHOLATE [Concomitant]
  2. TACROLIMUS CAP 0.5MG [Suspect]
     Active Substance: TACROLIMUS
     Dosage: ?          OTHER FREQUENCY:UNKNOWN;?
     Route: 048
     Dates: start: 201708

REACTIONS (1)
  - Hospitalisation [None]

NARRATIVE: CASE EVENT DATE: 20200421
